FAERS Safety Report 24448278 (Version 1)
Quarter: 2024Q4

REPORT INFORMATION
  Report Type: Report from Study
  Country: ZA (occurrence: ZA)
  Receive Date: 20241017
  Receipt Date: 20241017
  Transmission Date: 20250115
  Serious: Yes (Death, Other)
  Sender: ABBVIE
  Company Number: ZA-ABBOTT-2024A-1389665

PATIENT
  Age: 63 Year
  Sex: Male

DRUGS (22)
  1. FENOFIBRATE [Suspect]
     Active Substance: FENOFIBRATE
     Indication: Blood cholesterol
     Dosage: 200 MG TAKE ONE CAPSULE DAILY
     Route: 048
  2. ESCITALOPRAM [Concomitant]
     Active Substance: ESCITALOPRAM OXALATE
     Indication: Depression
     Dosage: 10 MG TAKE ONE TABLET DAILY
     Route: 048
  3. METOCLOPRAMIDE HYDROCHLORIDE [Concomitant]
     Active Substance: METOCLOPRAMIDE HYDROCHLORIDE
     Indication: Product used for unknown indication
     Dosage: 10 MG TAKE ONE TABLET THREE TIMES A DAY
     Route: 048
  4. CYCLIZINE [Concomitant]
     Active Substance: CYCLIZINE
     Indication: Product used for unknown indication
     Dosage: 100 MG INSERT ONE PER RECTUM EIGHT HOURLY WHEN NECESSARY
     Route: 054
  5. ONDANSETRON HYDROCHLORIDE [Concomitant]
     Active Substance: ONDANSETRON HYDROCHLORIDE
     Indication: Product used for unknown indication
     Dosage: 4 MG ONE THREE TIMES A DAY
     Route: 048
  6. Allergex [Concomitant]
     Indication: Hypersensitivity
     Dosage: 4 MG AS DIRECTED
     Route: 048
  7. NYSTACID [Concomitant]
     Indication: Product used for unknown indication
     Dosage: 100000 U GIVE 1ML FOUR TIMES A DAY
     Route: 048
  8. LASIX [Concomitant]
     Active Substance: FUROSEMIDE
     Indication: Hypertension
     Dosage: 40 MG TAKE DOSE AS DIRECTED
     Route: 048
  9. ESOMEPRAZOLE [Concomitant]
     Active Substance: ESOMEPRAZOLE
     Indication: Ulcer
     Dosage: 40 MG TAKE ONE TABLET IN THE MORNING
     Route: 048
  10. ACETYLCYSTEINE [Concomitant]
     Active Substance: ACETYLCYSTEINE
     Indication: Product used for unknown indication
     Dosage: 200 MG AS PER PACKAGE INSERT
     Route: 048
  11. SUDAFED SINUS PAIN [Concomitant]
     Indication: Product used for unknown indication
     Dosage: AS DIRECTED
  12. POTASSIUM CHLORIDE [Concomitant]
     Active Substance: POTASSIUM CHLORIDE
     Indication: Hypokalaemia
     Dosage: 600 MG TAKE ONE TABLET DAILY
     Route: 048
  13. NEUROBION [Concomitant]
     Active Substance: CYANOCOBALAMIN\PYRIDOXINE\THIAMINE
     Indication: Product used for unknown indication
     Dosage: TAKE ONE TABLET DAILY
     Route: 048
  14. Probiflora adult [Concomitant]
     Indication: Product used for unknown indication
     Dosage: TAKE ONE CAPSULE TWICE A DAY?PROBIFLORA 2 STRAIN
     Route: 048
  15. Stopayne [Concomitant]
     Indication: Pain
     Dosage: TAKE 1-2 TABLETS THREE TIMES A DAY
     Route: 048
  16. FUROSEMIDE [Concomitant]
     Active Substance: FUROSEMIDE
     Indication: Hypertension
     Dosage: 40 MG TAKE HALF IN THE MORNING AND ANOTHER    HALF IN THE AFTERNOON
     Route: 048
  17. ROSUVASTATIN [Concomitant]
     Active Substance: ROSUVASTATIN
     Indication: Blood cholesterol
     Dosage: 20 MG TAKE ONE TABLET AT NIGHT
     Route: 048
  18. Pendine [Concomitant]
     Indication: Hypertension
     Dosage: 10 MG TAKE ONE TABLET DAILY
     Route: 048
  19. Somnil [Concomitant]
     Indication: Product used for unknown indication
     Dosage: 25 MG AS DIRECTED
  20. OXYMETAZOLINE HYDROCHLORIDE [Concomitant]
     Active Substance: OXYMETAZOLINE HYDROCHLORIDE
     Indication: Product used for unknown indication
     Dosage: 0.5 MG ONE SPRAY TWICE A DAY IN EACH NOSTRIL FOR 5 DAYS
     Route: 045
  21. LEVOFLOXACIN [Concomitant]
     Active Substance: LEVOFLOXACIN
     Indication: Product used for unknown indication
     Dosage: 500 MG TAKE ONE TABLET DAILY
     Route: 048
  22. ETORICOXIB [Concomitant]
     Active Substance: ETORICOXIB
     Indication: Product used for unknown indication
     Dosage: 90 MG TAKE ONE TABLET DAILY
     Route: 048

REACTIONS (2)
  - Death [Fatal]
  - Colon cancer stage IV [Unknown]

NARRATIVE: CASE EVENT DATE: 20240930
